FAERS Safety Report 9050690 (Version 2)
Quarter: 2013Q4

REPORT INFORMATION
  Report Type: Spontaneous
  Country: US (occurrence: US)
  Receive Date: 20130205
  Receipt Date: 20131015
  Transmission Date: 20140711
  Serious: No
  Sender: FDA-Public Use
  Company Number: US-009507513-1302USA001527

PATIENT
  Sex: Female
  Weight: 58.5 kg

DRUGS (8)
  1. MIRALAX [Suspect]
     Indication: CONSTIPATION
     Dosage: 8.5 G, QD
     Route: 048
     Dates: start: 2009, end: 2011
  2. MIRALAX [Suspect]
     Dosage: 8.5 G, PRN
     Route: 048
     Dates: end: 2013
  3. AMLODIPINE [Concomitant]
     Indication: BLOOD PRESSURE ABNORMAL
     Dosage: UNK, UNKNOWN
  4. LISINOPRIL [Concomitant]
     Indication: BLOOD PRESSURE ABNORMAL
     Dosage: UNK, UNKNOWN
  5. SIMVASTATIN [Concomitant]
     Indication: BLOOD CHOLESTEROL ABNORMAL
     Dosage: UNK, UNKNOWN
  6. APPLE CIDER VINEGAR [Concomitant]
     Indication: DYSPEPSIA
     Dosage: UNK, UNKNOWN
  7. GINGER [Concomitant]
     Indication: DYSPEPSIA
     Dosage: UNK, UNKNOWN
  8. GNC GLUCOSAMINE CHONDROTIN [Concomitant]
     Indication: ARTHROPATHY
     Dosage: UNK, UNKNOWN

REACTIONS (3)
  - Abdominal distension [Recovered/Resolved]
  - Incorrect drug administration duration [Unknown]
  - Underdose [Unknown]
